FAERS Safety Report 8303239-8 (Version None)
Quarter: 2012Q2

REPORT INFORMATION
  Report Type: 
  Country: None (occurrence: None)
  Receive Date: 20120423
  Receipt Date: 20120412
  Transmission Date: 20120825
  Serious: No
  Sender: FDA-Public Use
  Company Number: US-BIOGENIDEC-2012BI013162

PATIENT
  Age: 60 Year
  Sex: Female

DRUGS (3)
  1. TYLENOL (CAPLET) [Concomitant]
     Indication: ARTHRITIS
  2. TYSABRI [Suspect]
     Indication: MULTIPLE SCLEROSIS
     Route: 042
     Dates: start: 20111116
  3. NAPROXEN (ALEVE) [Concomitant]
     Indication: ARTHRITIS

REACTIONS (2)
  - IMPAIRED HEALING [None]
  - ARTHRITIS [None]
